FAERS Safety Report 13638452 (Version 2)
Quarter: 2017Q3

REPORT INFORMATION
  Report Type: Report from Study
  Country: RU (occurrence: RU)
  Receive Date: 20170609
  Receipt Date: 20170929
  Transmission Date: 20171127
  Serious: Yes (Life-Threatening, Hospitalization)
  Sender: FDA-Public Use
  Company Number: RU-ARIAD PHARMACEUTICALS, INC-2017RU008359

PATIENT
  Age: 33 Year
  Sex: Male
  Weight: 108 kg

DRUGS (4)
  1. HEPTRAL [Concomitant]
     Active Substance: ADEMETIONINE
     Indication: ALANINE AMINOTRANSFERASE INCREASED
  2. HEPTRAL [Concomitant]
     Active Substance: ADEMETIONINE
     Indication: ASPARTATE AMINOTRANSFERASE INCREASED
     Dosage: UNK
     Route: 048
     Dates: start: 20170405
  3. PONATINIB [Suspect]
     Active Substance: PONATINIB
     Dosage: 15 MG, QD
     Route: 048
     Dates: start: 20170621, end: 20170825
  4. PONATINIB [Suspect]
     Active Substance: PONATINIB
     Indication: CHRONIC MYELOID LEUKAEMIA
     Dosage: 30 MG, QD
     Route: 048
     Dates: start: 20170426, end: 20170524

REACTIONS (1)
  - Platelet count decreased [Recovered/Resolved]

NARRATIVE: CASE EVENT DATE: 20170605
